FAERS Safety Report 8509659-0 (Version None)
Quarter: 2012Q3

REPORT INFORMATION
  Report Type: 
  Country: None (occurrence: None)
  Receive Date: 20120713
  Receipt Date: 20120711
  Transmission Date: 20120928
  Serious: Yes (Other)
  Sender: FDA-Public Use
  Company Number: US-BAYER-2012-069413

PATIENT
  Sex: Female

DRUGS (2)
  1. MIRENA [Suspect]
     Indication: CONTRACEPTION
     Dosage: 20 MCG/24HR, CONT
     Dates: start: 20070101, end: 20120626
  2. YAZ [Suspect]
     Indication: MENSTRUATION IRREGULAR
     Dosage: UNK
     Dates: start: 20111101

REACTIONS (13)
  - MIGRAINE [None]
  - RASH [None]
  - RAYNAUD'S PHENOMENON [None]
  - SYSTEMIC LUPUS ERYTHEMATOSUS [None]
  - RHEUMATOID FACTOR POSITIVE [None]
  - ASTHENIA [None]
  - ANTINUCLEAR ANTIBODY POSITIVE [None]
  - ALOPECIA [None]
  - FATIGUE [None]
  - AUTOANTIBODY POSITIVE [None]
  - MENSTRUATION IRREGULAR [None]
  - ARTHRALGIA [None]
  - SKIN DISCOLOURATION [None]
